FAERS Safety Report 12096412 (Version 2)
Quarter: 2016Q3

REPORT INFORMATION
  Report Type: Spontaneous
  Country: US (occurrence: US)
  Receive Date: 20160220
  Receipt Date: 20160826
  Transmission Date: 20161109
  Serious: Yes (Life-Threatening, Congenital Anomaly, Other)
  Sender: FDA-Public Use
  Company Number: US-ELI_LILLY_AND_COMPANY-US201602005995

PATIENT
  Age: 0 Day
  Sex: Female
  Weight: 1.7 kg

DRUGS (1)
  1. PROZAC [Suspect]
     Active Substance: FLUOXETINE HYDROCHLORIDE
     Indication: PRODUCT USED FOR UNKNOWN INDICATION
     Dosage: UNK UNK, UNKNOWN
     Route: 064

REACTIONS (10)
  - Bradycardia foetal [Unknown]
  - Infantile apnoea [Recovered/Resolved]
  - Pulmonary artery stenosis congenital [Unknown]
  - Foetal exposure during pregnancy [Unknown]
  - Meconium in amniotic fluid [Unknown]
  - Supraventricular extrasystoles [Recovered/Resolved]
  - Atrial septal defect [Recovered/Resolved]
  - Bradycardia neonatal [Recovered/Resolved]
  - Premature baby [Unknown]
  - Neonatal respiratory distress syndrome [Recovered/Resolved]

NARRATIVE: CASE EVENT DATE: 20050309
